FAERS Safety Report 14655557 (Version 2)
Quarter: 2018Q2

REPORT INFORMATION
  Report Type: Spontaneous
  Country: GB (occurrence: GB)
  Receive Date: 20180319
  Receipt Date: 20180609
  Transmission Date: 20180711
  Serious: Yes (Other)
  Sender: FDA-Public Use
  Company Number: GB-TEVA-2018-GB-870281

PATIENT
  Sex: Female
  Weight: 82.9 kg

DRUGS (19)
  1. LINEZOLID. [Suspect]
     Active Substance: LINEZOLID
     Indication: ENTEROCOCCAL INFECTION
     Dosage: 1200 MILLIGRAM DAILY;
     Route: 048
     Dates: start: 20171228, end: 20180104
  2. PARACETAMOL [Concomitant]
     Active Substance: ACETAMINOPHEN
     Route: 065
  3. CASSIA [Concomitant]
     Route: 065
  4. LANSOPRAZOLE. [Concomitant]
     Active Substance: LANSOPRAZOLE
     Route: 065
  5. AMITRIPTYLINE [Suspect]
     Active Substance: AMITRIPTYLINE
     Dosage: 20 MILLIGRAM DAILY; AT NIGHT.
     Route: 048
     Dates: start: 2015, end: 20180103
  6. ATORVASTATIN [Concomitant]
     Active Substance: ATORVASTATIN
     Route: 065
  7. MENTHOL. [Concomitant]
     Active Substance: MENTHOL
     Dosage: IN AQUEOUS CREAM..
  8. TAZOCIN [Concomitant]
     Active Substance: PIPERACILLIN SODIUM\TAZOBACTAM SODIUM
     Route: 065
  9. CARBOCISTEINE [Concomitant]
     Active Substance: CARBOCYSTEINE
     Route: 065
  10. AQUEOUS CREAM [Concomitant]
     Route: 065
  11. DALTEPARIN [Concomitant]
     Active Substance: DALTEPARIN
     Route: 065
  12. AMLODIPINE [Concomitant]
     Active Substance: AMLODIPINE BESYLATE
     Route: 065
  13. OMEPRAZOLE. [Concomitant]
     Active Substance: OMEPRAZOLE
  14. FOLIC ACID. [Concomitant]
     Active Substance: FOLIC ACID
     Route: 065
  15. VANCOMYCIN [Concomitant]
     Active Substance: VANCOMYCIN
     Route: 065
  16. MEROPENEM. [Concomitant]
     Active Substance: MEROPENEM
     Route: 065
  17. BISOPROLOL [Concomitant]
     Active Substance: BISOPROLOL
     Route: 065
  18. METFORMIN [Concomitant]
     Active Substance: METFORMIN HYDROCHLORIDE
     Route: 065
  19. DIPROBASE [Concomitant]
     Active Substance: CHLOROCRESOL
     Route: 065

REACTIONS (6)
  - Coma scale abnormal [Unknown]
  - Serotonin syndrome [Recovered/Resolved]
  - Clonus [Unknown]
  - Hypertonia [Unknown]
  - Muscle twitching [Unknown]
  - Vertigo [Unknown]
